FAERS Safety Report 5857272-6 (Version None)
Quarter: 2008Q3

REPORT INFORMATION
  Report Type: 
  Country: None (occurrence: None)
  Receive Date: 20080822
  Receipt Date: 20080813
  Transmission Date: 20090109
  Serious: Yes (Life-Threatening, Hospitalization, Disabling)
  Sender: FDA-Public Use
  Company Number: CIP08000855

PATIENT
  Age: 83 Year
  Sex: Female
  Weight: 72.6 kg

DRUGS (7)
  1. ACTONEL [Suspect]
     Indication: OSTEOPOROSIS
     Dosage: 35 MG ONCE WEEKLY, ORAL
     Route: 048
     Dates: start: 20060101, end: 20070301
  2. FOSAMAX [Suspect]
     Indication: OSTEOPOROSIS
     Dosage: UNK MG, 1/WEEK, ORAL
     Route: 048
     Dates: start: 20030101, end: 20070301
  3. COZAAR [Concomitant]
  4. DILTIAZEM HCL [Concomitant]
  5. SYNTHROID [Concomitant]
  6. ADVAIR (SALMETEROL XINAFOATE, FLUTICASONE PROPIONATE) [Concomitant]
  7. TIMOLOL [Concomitant]

REACTIONS (4)
  - APHASIA [None]
  - ATRIAL FIBRILLATION [None]
  - EMBOLIC STROKE [None]
  - NO THERAPEUTIC RESPONSE [None]
